FAERS Safety Report 15016903 (Version 8)
Quarter: 2018Q3

REPORT INFORMATION
  Report Type: Report from Study
  Country: PE (occurrence: PE)
  Receive Date: 20180615
  Receipt Date: 20180917
  Transmission Date: 20181010
  Serious: Yes (Other)
  Sender: FDA-Public Use
  Company Number: PE-ALLERGAN-1830363US

PATIENT
  Age: 50 Year
  Sex: Female
  Weight: 72 kg

DRUGS (4)
  1. BIMATOPROST 0.015 MG INS (11048X) [Suspect]
     Active Substance: BIMATOPROST
     Indication: OPEN ANGLE GLAUCOMA
     Dosage: 15 ?G, SINGLE
     Route: 031
     Dates: start: 20160909
  2. BIMATOPROST 0.015 MG INS (11048X) [Suspect]
     Active Substance: BIMATOPROST
     Dosage: 15 ?G, SINGLE
     Route: 031
     Dates: start: 20170419
  3. BISMUTH SILICATE [Concomitant]
     Indication: CHRONIC GASTRITIS
     Dosage: 83.33 MG, Q8HR, (ONE TABLE SPOON EVERY 8 H)
     Route: 048
     Dates: start: 20110208
  4. ERGOTAMINE TARTRATE. [Concomitant]
     Active Substance: ERGOTAMINE TARTRATE
     Indication: MIGRAINE
     Dosage: 1 MG, PRN
     Route: 048
     Dates: start: 2013

REACTIONS (1)
  - Corneal endothelial cell loss [Not Recovered/Not Resolved]

NARRATIVE: CASE EVENT DATE: 20180608
